FAERS Safety Report 5088636-9 (Version None)
Quarter: 2006Q3

REPORT INFORMATION
  Report Type: 
  Country: None (occurrence: None)
  Receive Date: 20060825
  Receipt Date: 20060816
  Transmission Date: 20061208
  Serious: Yes (Other)
  Sender: FDA-Public Use
  Company Number: PHBS2006BR12509

PATIENT
  Age: 76 Year
  Sex: Male
  Weight: 46 kg

DRUGS (1)
  1. FORADIL [Suspect]
     Indication: EMPHYSEMA
     Dosage: 12 UG, UNK

REACTIONS (5)
  - DYSPHAGIA [None]
  - DYSPHONIA [None]
  - MEMORY IMPAIRMENT [None]
  - MUSCLE SPASMS [None]
  - WEIGHT DECREASED [None]
